FAERS Safety Report 7265726-3 (Version None)
Quarter: 2011Q1

REPORT INFORMATION
  Report Type: 
  Country: None (occurrence: None)
  Receive Date: 20110131
  Receipt Date: 20110118
  Transmission Date: 20110831
  Serious: Yes (Death, Hospitalization)
  Sender: FDA-Public Use
  Company Number: IN-ELI_LILLY_AND_COMPANY-IN201012006659

PATIENT
  Age: 68 Year
  Sex: Male
  Weight: 59 kg

DRUGS (4)
  1. REOPRO [Concomitant]
     Indication: PERCUTANEOUS CORONARY INTERVENTION
     Dosage: UNK, UNKNOWN
     Route: 065
  2. ASPIRIN [Concomitant]
     Dosage: UNK, UNKNOWN
     Route: 065
     Dates: start: 20101210
  3. EFFIENT [Suspect]
     Indication: PERCUTANEOUS CORONARY INTERVENTION
     Dosage: 60 MG, MAINTENACE
     Route: 065
     Dates: start: 20101209
  4. EFFIENT [Suspect]
     Dosage: 10 MG, UNKNOWN
     Route: 065
     Dates: start: 20101211

REACTIONS (1)
  - GASTROINTESTINAL HAEMORRHAGE [None]
